FAERS Safety Report 5021239-0 (Version None)
Quarter: 2006Q2

REPORT INFORMATION
  Report Type: 
  Country: None (occurrence: None)
  Receive Date: 20060605
  Receipt Date: 20060523
  Transmission Date: 20061013
  Serious: Yes (Death)
  Sender: FDA-Public Use
  Company Number: 163-21880-06040859

PATIENT
  Age: 76 Year
  Sex: Male

DRUGS (7)
  1. REVLIMID [Suspect]
     Indication: MYELODYSPLASTIC SYNDROME
     Dosage: 5 MG, EVERY OTHER DAY, ORAL
     Route: 048
     Dates: start: 20060306, end: 20060413
  2. SINEMET [Concomitant]
  3. PROTONIX [Concomitant]
  4. CALCIUM (CALCIUM) [Concomitant]
  5. VITAMIN D [Concomitant]
  6. VITAMIN B6 [Concomitant]
  7. PROCRIT [Concomitant]

REACTIONS (2)
  - PNEUMONIA ASPIRATION [None]
  - REGURGITATION OF FOOD [None]
